FAERS Safety Report 7704302-2 (Version None)
Quarter: 2011Q3

REPORT INFORMATION
  Report Type: 
  Country: None (occurrence: None)
  Receive Date: 20110823
  Receipt Date: 20110810
  Transmission Date: 20111222
  Serious: Yes (Hospitalization)
  Sender: FDA-Public Use
  Company Number: PHEH2011US01523

PATIENT
  Sex: Male
  Weight: 90.703 kg

DRUGS (1)
  1. EXJADE [Suspect]
     Indication: MINERAL METABOLISM DISORDER
     Dosage: 2125 MG, DAILY
     Route: 048
     Dates: start: 20080906

REACTIONS (1)
  - ACUTE LEUKAEMIA [None]
